FAERS Safety Report 25733001 (Version 1)
Quarter: 2025Q3

REPORT INFORMATION
  Report Type: Report from Study
  Country: AU (occurrence: AU)
  Receive Date: 20250828
  Receipt Date: 20250828
  Transmission Date: 20251021
  Serious: Yes (Hospitalization, Other)
  Sender: ROCHE
  Company Number: AU-ROCHE-10000073865

PATIENT
  Age: 44 Year
  Sex: Female
  Weight: 131 kg

DRUGS (2)
  1. OCREVUS [Suspect]
     Active Substance: OCRELIZUMAB
     Indication: Multiple sclerosis
     Route: 042
     Dates: start: 2019
  2. OCREVUS [Suspect]
     Active Substance: OCRELIZUMAB
     Route: 042
     Dates: start: 2019

REACTIONS (9)
  - Fatigue [Unknown]
  - Asthenia [Unknown]
  - Head injury [Unknown]
  - Headache [Unknown]
  - Optic neuritis [Unknown]
  - Contusion [Unknown]
  - Fall [Unknown]
  - Hypoaesthesia [Unknown]
  - Abdominal pain [Recovering/Resolving]

NARRATIVE: CASE EVENT DATE: 20240902
